FAERS Safety Report 4954331-7 (Version None)
Quarter: 2006Q1

REPORT INFORMATION
  Report Type: 
  Country: None (occurrence: None)
  Receive Date: 20060327
  Receipt Date: 20050928
  Transmission Date: 20060701
  Serious: Yes (Hospitalization)
  Sender: FDA-Public Use
  Company Number: US-MERCK-0509USA04587

PATIENT
  Age: 65 Year
  Sex: Female
  Weight: 91 kg

DRUGS (14)
  1. VIOXX [Suspect]
     Indication: ARTHRALGIA
     Route: 048
     Dates: start: 20020323, end: 20041001
  2. VIOXX [Suspect]
     Route: 048
     Dates: start: 20020323, end: 20041001
  3. BEXTRA [Suspect]
     Route: 065
  4. CELEBREX [Suspect]
     Route: 065
  5. METFORMIN [Concomitant]
     Route: 065
  6. LANTUS [Concomitant]
     Route: 065
  7. GLIPIZIDE [Concomitant]
     Route: 065
  8. HUMALOG [Concomitant]
     Route: 065
  9. LEVOXYL [Concomitant]
     Route: 065
  10. PRAZOSIN-BC [Concomitant]
     Route: 065
  11. ZESTRIL [Concomitant]
     Route: 065
  12. ASPIRIN [Concomitant]
     Route: 065
  13. ESTRADERM [Concomitant]
     Route: 065
  14. HYDROCODONE BITARTRATE [Concomitant]
     Route: 065

REACTIONS (39)
  - ALOPECIA [None]
  - ANGINA UNSTABLE [None]
  - ANGIOMYOLIPOMA [None]
  - CATARACT [None]
  - CHRONIC OBSTRUCTIVE PULMONARY DISEASE [None]
  - COLONIC POLYP [None]
  - CORONARY ARTERY DISEASE [None]
  - CORONARY ARTERY DISSECTION [None]
  - DEPRESSION [None]
  - DRY EYE [None]
  - DYSPNOEA [None]
  - ELECTROCARDIOGRAM ST-T CHANGE [None]
  - FEMORAL ARTERY OCCLUSION [None]
  - GASTROOESOPHAGEAL REFLUX DISEASE [None]
  - HEPATIC STEATOSIS [None]
  - HIATUS HERNIA [None]
  - HYPERLIPIDAEMIA [None]
  - HYPERTENSION [None]
  - HYPOTHYROIDISM [None]
  - ILIAC ARTERY STENOSIS [None]
  - INCONTINENCE [None]
  - INSOMNIA [None]
  - INTERMITTENT CLAUDICATION [None]
  - INTERVERTEBRAL DISC DISORDER [None]
  - LUNG NEOPLASM [None]
  - LUNG NEOPLASM MALIGNANT [None]
  - MYOCARDIAL INFARCTION [None]
  - PAIN IN EXTREMITY [None]
  - PANIC ATTACK [None]
  - PEPTIC ULCER [None]
  - PNEUMONIA [None]
  - POLYURIA [None]
  - RASH [None]
  - SACROILIITIS [None]
  - SECONDARY HYPOTHYROIDISM [None]
  - SPINAL LAMINECTOMY [None]
  - THYROID GLAND CANCER [None]
  - TINNITUS [None]
  - URINARY TRACT INFECTION [None]
